FAERS Safety Report 4373717-5 (Version None)
Quarter: 2004Q1

REPORT INFORMATION
  Report Type: 
  Country: None (occurrence: None)
  Receive Date: 20040305
  Receipt Date: 20031231
  Transmission Date: 20041129
  Serious: Yes (Other)
  Sender: FDA-Public Use
  Company Number: 2004UW00018

PATIENT
  Age: 70 Year
  Sex: Male

DRUGS (10)
  1. CRESTOR [Suspect]
     Dosage: 10 MG PO
     Route: 048
     Dates: start: 20031230
  2. PLAVIX [Concomitant]
  3. METHOTREXATE [Concomitant]
  4. PREDNISONE [Concomitant]
  5. FOLIC ACID [Concomitant]
  6. IRON [Concomitant]
  7. CALCIUM [Concomitant]
  8. PREVACID [Concomitant]
  9. REMICADE [Concomitant]
  10. DOXEPIN HCL [Concomitant]

REACTIONS (1)
  - NIGHT SWEATS [None]
